FAERS Safety Report 7141569-6 (Version None)
Quarter: 2010Q4

REPORT INFORMATION
  Report Type: 
  Country: None (occurrence: None)
  Receive Date: 20101207
  Receipt Date: 20101201
  Transmission Date: 20110411
  Serious: Yes (Life-Threatening, Hospitalization, Disabling, Other)
  Sender: FDA-Public Use
  Company Number: PHHY2010US79110

PATIENT
  Sex: Female

DRUGS (6)
  1. EXELON [Suspect]
     Indication: DEMENTIA ALZHEIMER'S TYPE
     Dosage: 1 DF, QD
     Route: 062
     Dates: start: 20100202
  2. LASIX [Concomitant]
     Indication: OEDEMA
     Dosage: 80 MG, BID
  3. POTASSIUM CHLORIDE [Concomitant]
  4. METOPROLOL [Concomitant]
     Indication: HYPERTENSION
     Dosage: 50 MG, BID
  5. ASPIRIN [Concomitant]
  6. LISINOPRIL [Concomitant]
     Indication: HYPERTENSION
     Dosage: 5 MG, QD
     Route: 048

REACTIONS (5)
  - APHASIA [None]
  - CEREBROVASCULAR ACCIDENT [None]
  - CONFUSIONAL STATE [None]
  - COORDINATION ABNORMAL [None]
  - SPEECH DISORDER [None]
